FAERS Safety Report 5841170-8 (Version None)
Quarter: 2008Q3

REPORT INFORMATION
  Report Type: 
  Country: None (occurrence: None)
  Receive Date: 20080807
  Receipt Date: 20080807
  Transmission Date: 20090109
  Serious: No
  Sender: FDA-Public Use
  Company Number: None

PATIENT
  Age: 80 Year
  Sex: Female
  Weight: 55.3388 kg

DRUGS (1)
  1. VIGAMOX [Suspect]
     Indication: CATARACT OPERATION
     Dosage: 1 DROP  4 TIMES DA./7DAYS OPHTHALMIC
     Route: 047
     Dates: start: 20080724, end: 20080731

REACTIONS (7)
  - DISCOMFORT [None]
  - ERYTHEMA [None]
  - INFLUENZA LIKE ILLNESS [None]
  - MUSCULOSKELETAL STIFFNESS [None]
  - RASH [None]
  - SWELLING [None]
  - URTICARIA [None]
